FAERS Safety Report 9746329 (Version 1)
Quarter: 2013Q4

REPORT INFORMATION
  Report Type: Spontaneous
  Country: US (occurrence: US)
  Receive Date: 20131211
  Receipt Date: 20131211
  Transmission Date: 20140711
  Serious: No
  Sender: FDA-Public Use
  Company Number: US-ENDO PHARMACEUTICALS INC.-PRED20130022

PATIENT
  Sex: Female

DRUGS (2)
  1. PREDNISONE TABLETS [Suspect]
     Indication: ARTHROPOD BITE
     Dosage: UNK
     Route: 048
  2. BENADRYL [Concomitant]
     Indication: ARTHROPOD BITE
     Dosage: UNK

REACTIONS (1)
  - Drug ineffective [Unknown]
